FAERS Safety Report 6154186-1 (Version None)
Quarter: 2009Q2

REPORT INFORMATION
  Report Type: 
  Country: None (occurrence: None)
  Receive Date: 20090414
  Receipt Date: 20090407
  Transmission Date: 20091009
  Serious: Yes (Hospitalization)
  Sender: FDA-Public Use
  Company Number: FR-ABBOTT-09P-056-0567097-00

PATIENT
  Sex: Male

DRUGS (5)
  1. DEPAKOTE [Suspect]
     Indication: PSYCHOTIC DISORDER
     Route: 048
  2. RIVOTRIL [Suspect]
     Indication: PSYCHOTIC DISORDER
     Dosage: 2.5 MG/ML, 1MG BID
     Route: 048
  3. LOXAPAC [Suspect]
     Indication: PSYCHOTIC DISORDER
     Route: 048
  4. CLOZAPINE [Suspect]
     Indication: PSYCHOTIC DISORDER
     Route: 048
  5. EFFEXOR [Suspect]
     Indication: PSYCHOTIC DISORDER
     Route: 048

REACTIONS (2)
  - CYANOSIS [None]
  - HYPOXIA [None]
